FAERS Safety Report 4269856-X (Version None)
Quarter: 2004Q1

REPORT INFORMATION
  Report Type: 
  Country: None (occurrence: None)
  Receive Date: 20040112
  Receipt Date: 20040112
  Transmission Date: 20041129
  Serious: Yes (Hospitalization)
  Sender: FDA-Public Use
  Company Number: None

PATIENT
  Age: 81 Year
  Sex: Male

DRUGS (7)
  1. HYDROCHLOROTHIAZIDE [Suspect]
     Indication: HYPERTENSION
     Dosage: 12.5 MG QD
     Dates: start: 20030701
  2. TERAZOSIN HCL [Suspect]
     Dosage: 10 MEQ
     Dates: start: 20010701
  3. GLYBURIDE [Suspect]
     Indication: DIABETES MELLITUS NON-INSULIN-DEPENDENT
     Dosage: 1.25 MG QD
     Dates: start: 19970101
  4. FOSINOPRIL SODIUM [Concomitant]
  5. PRIMIDONE [Concomitant]
  6. ACIPHEX [Concomitant]
  7. ZOCOR [Concomitant]

REACTIONS (2)
  - HYPOGLYCAEMIA [None]
  - SINUS BRADYCARDIA [None]
